FAERS Safety Report 4724959-8 (Version None)
Quarter: 2005Q3

REPORT INFORMATION
  Report Type: 
  Country: None (occurrence: None)
  Receive Date: 20050722
  Receipt Date: 20050722
  Transmission Date: 20060218
  Serious: Yes (Hospitalization)
  Sender: FDA-Public Use
  Company Number: None

PATIENT
  Age: 38 Year
  Sex: Male

DRUGS (1)
  1. HEPARIN [Suspect]

REACTIONS (8)
  - ANTIBODY TEST POSITIVE [None]
  - CARDIAC FAILURE [None]
  - CORONARY ARTERY SURGERY [None]
  - DRY GANGRENE [None]
  - PLATELET COUNT DECREASED [None]
  - THROMBOSIS [None]
  - TOE AMPUTATION [None]
  - VENTRICULAR SEPTAL DEFECT REPAIR [None]
